FAERS Safety Report 5818366-4 (Version None)
Quarter: 2008Q3

REPORT INFORMATION
  Report Type: 
  Country: None (occurrence: None)
  Receive Date: 20080722
  Receipt Date: 20080711
  Transmission Date: 20090109
  Serious: Yes (Life-Threatening)
  Sender: FDA-Public Use
  Company Number: JP-PFIZER INC-2008058683

PATIENT
  Age: 61 Year
  Sex: Male

DRUGS (3)
  1. UNASYN [Suspect]
     Indication: PNEUMONIA ASPIRATION
     Route: 042
  2. SULPERAZON [Suspect]
     Route: 042
  3. ITOROL [Concomitant]
     Route: 048

REACTIONS (3)
  - BLOOD PRESSURE FLUCTUATION [None]
  - DRUG ERUPTION [None]
  - MUSCULOSKELETAL STIFFNESS [None]
